FAERS Safety Report 18006541 (Version 1)
Quarter: 2020Q3

REPORT INFORMATION
  Report Type: Spontaneous
  Country: US (occurrence: US)
  Receive Date: 20200710
  Receipt Date: 20200710
  Transmission Date: 20201103
  Serious: No
  Sender: FDA-Public Use
  Company Number: US-PERRIGO-19US012204

PATIENT
  Age: 43 Year
  Sex: Female
  Weight: 56.24 kg

DRUGS (3)
  1. DESMOPRESSIN [Concomitant]
     Active Substance: DESMOPRESSIN
     Indication: DIURETIC THERAPY
     Dosage: UNK
     Route: 065
     Dates: start: 201908
  2. MICONAZOLE 1 [Suspect]
     Active Substance: MICONAZOLE NITRATE
     Indication: VULVOVAGINAL MYCOTIC INFECTION
     Dosage: 1200 MG, SINGLE
     Route: 067
     Dates: start: 20191005, end: 20191005
  3. VITAMIN D NOS [Concomitant]
     Active Substance: VITAMIN D NOS
     Indication: SUPPLEMENTATION THERAPY
     Dosage: UNK
     Route: 065
     Dates: start: 201907

REACTIONS (3)
  - Vaginal discharge [Recovering/Resolving]
  - Hypersensitivity [Recovering/Resolving]
  - Vulvovaginal discomfort [Recovering/Resolving]

NARRATIVE: CASE EVENT DATE: 20191006
